FAERS Safety Report 19754227 (Version 1)
Quarter: 2021Q3

REPORT INFORMATION
  Report Type: Spontaneous
  Country: US (occurrence: US)
  Receive Date: 20210827
  Receipt Date: 20210827
  Transmission Date: 20211014
  Serious: Yes (Other)
  Sender: FDA-Public Use
  Company Number: US-GLAXOSMITHKLINE-US2021GSK179510

PATIENT
  Sex: Female

DRUGS (5)
  1. RANITIDINE. [Suspect]
     Active Substance: RANITIDINE
     Indication: HAEMOPTYSIS
     Dosage: 25 MG
     Route: 065
     Dates: start: 200001, end: 200001
  2. RANITIDINE HYDROCHLORIDE. [Suspect]
     Active Substance: RANITIDINE HYDROCHLORIDE
     Indication: HAEMOPTYSIS
     Dosage: 25 MG/ML, OCCASIONAL
     Route: 065
     Dates: start: 200401, end: 202001
  3. ZANTAC [Suspect]
     Active Substance: RANITIDINE HYDROCHLORIDE
     Indication: HAEMOPTYSIS
     Dosage: 25 MG, QD
     Route: 065
     Dates: start: 200201, end: 200401
  4. ZANTAC [Suspect]
     Active Substance: RANITIDINE HYDROCHLORIDE
     Indication: HAEMOPTYSIS
     Dosage: 25 MG, QD
     Route: 065
     Dates: start: 200201, end: 200401
  5. RANITIDINE. [Suspect]
     Active Substance: RANITIDINE
     Indication: HAEMOPTYSIS
     Dosage: 25 MG
     Route: 065
     Dates: start: 200001, end: 200001

REACTIONS (2)
  - Breast cancer [Unknown]
  - Lung neoplasm malignant [Unknown]
